FAERS Safety Report 9714526 (Version 4)
Quarter: 2018Q3

REPORT INFORMATION
  Report Type: Spontaneous
  Country: US (occurrence: US)
  Receive Date: 20131126
  Receipt Date: 20180803
  Transmission Date: 20181010
  Serious: Yes (Hospitalization, Other)
  Sender: FDA-Public Use
  Company Number: US-009507513-1111USA03158

PATIENT
  Sex: Female

DRUGS (6)
  1. CENTRUM (MINERALS (UNSPECIFIED) (+) VITAMINS (UNSPECIFIED)) [Concomitant]
     Route: 048
  2. FOSAMAX [Suspect]
     Active Substance: ALENDRONATE SODIUM
     Indication: OSTEOPOROSIS
     Dosage: 70 MG, QW
     Route: 048
     Dates: start: 1998, end: 2008
  3. CALTRATE [Concomitant]
     Active Substance: CALCIUM CARBONATE
     Dosage: 600 MG, QD
     Route: 065
  4. FOSAMAX PLUS D [Suspect]
     Active Substance: ALENDRONATE SODIUM\CHOLECALCIFEROL
     Dosage: 70 MG/2800 IU
     Route: 048
     Dates: start: 201308
  5. ALENDRONATE SODIUM. [Suspect]
     Active Substance: ALENDRONATE SODIUM
     Indication: OSTEOPOROSIS
     Dosage: 70 MG, QW
     Route: 048
     Dates: start: 20080623, end: 20110217
  6. FOSAMAX [Suspect]
     Active Substance: ALENDRONATE SODIUM
     Dosage: 70 MG, QW
     Route: 048
     Dates: start: 20170303

REACTIONS (46)
  - Hypothyroidism [Unknown]
  - Fall [Unknown]
  - Chronic kidney disease [Unknown]
  - Sinus node dysfunction [Unknown]
  - Anaemia [Unknown]
  - Thrombosis [Unknown]
  - Hand fracture [Unknown]
  - Cataract [Unknown]
  - Humerus fracture [Recovering/Resolving]
  - Wrist fracture [Recovered/Resolved]
  - Fall [Unknown]
  - Shoulder operation [Unknown]
  - Arthralgia [Unknown]
  - Hypertension [Unknown]
  - Urinary tract infection [Unknown]
  - Device extrusion [Unknown]
  - Urosepsis [Unknown]
  - Herpes zoster [Unknown]
  - Hyperlipidaemia [Unknown]
  - Ulcer haemorrhage [Unknown]
  - Hypercholesterolaemia [Unknown]
  - Shoulder arthroplasty [Unknown]
  - Osteopenia [Unknown]
  - Femur fracture [Recovered/Resolved]
  - Fall [Unknown]
  - Fall [Unknown]
  - Infection [Unknown]
  - Urinary tract infection [Unknown]
  - Laceration [Recovering/Resolving]
  - Wound [Unknown]
  - End stage renal disease [Unknown]
  - Femur fracture [Recovered/Resolved]
  - Limb injury [Unknown]
  - Cough [Unknown]
  - Upper limb fracture [Unknown]
  - Laceration [Unknown]
  - Atrial fibrillation [Unknown]
  - Fall [Unknown]
  - Osteoarthritis [Unknown]
  - Renal cyst [Unknown]
  - Headache [Unknown]
  - Decreased appetite [Unknown]
  - Clostridium difficile infection [Unknown]
  - Renal transplant [Unknown]
  - Fall [Unknown]
  - Pain [Unknown]

NARRATIVE: CASE EVENT DATE: 2005
